FAERS Safety Report 14441486 (Version 2)
Quarter: 2018Q3

REPORT INFORMATION
  Report Type: Spontaneous
  Country: US (occurrence: US)
  Receive Date: 20180125
  Receipt Date: 20180716
  Transmission Date: 20181010
  Serious: Yes (Hospitalization, Other)
  Sender: FDA-Public Use
  Company Number: US-DSJP-DSU-2017-138361

PATIENT

DRUGS (2)
  1. BENICAR [Suspect]
     Active Substance: OLMESARTAN MEDOXOMIL
     Indication: PRODUCT USED FOR UNKNOWN INDICATION
     Dosage: UNK UNK, QD
     Dates: start: 20071202
  2. BENICAR HCT [Suspect]
     Active Substance: HYDROCHLOROTHIAZIDE\OLMESARTAN MEDOXOMIL
     Indication: PRODUCT USED FOR UNKNOWN INDICATION
     Dosage: 20/12.5 MG HALF TABLET, QD
     Route: 048
     Dates: end: 20170511

REACTIONS (8)
  - Presyncope [Recovered/Resolved]
  - Hiatus hernia [Unknown]
  - Peptic ulcer [Unknown]
  - Small intestinal obstruction [Recovering/Resolving]
  - Gastroenteritis viral [Unknown]
  - Sprue-like enteropathy [Recovering/Resolving]
  - Drug administration error [Unknown]
  - Gastrooesophageal reflux disease [Recovering/Resolving]

NARRATIVE: CASE EVENT DATE: 20071202
